FAERS Safety Report 15657895 (Version 1)
Quarter: 2018Q4

REPORT INFORMATION
  Report Type: Spontaneous
  Country: US (occurrence: US)
  Receive Date: 20181126
  Receipt Date: 20181126
  Transmission Date: 20190205
  Serious: No
  Sender: FDA-Public Use
  Company Number: None

PATIENT
  Age: 46 Year
  Sex: Female
  Weight: 67.9 kg

DRUGS (1)
  1. GAMUNEX-C [Suspect]
     Active Substance: HUMAN IMMUNOGLOBULIN G
     Indication: STIFF PERSON SYNDROME
     Dosage: ?          OTHER FREQUENCY:DAYS 1-5 Q MONTH;?
     Route: 042
     Dates: start: 20181119, end: 20181119

REACTIONS (1)
  - Pruritus [None]

NARRATIVE: CASE EVENT DATE: 20181119
